FAERS Safety Report 10019036 (Version 1)
Quarter: 2014Q1

REPORT INFORMATION
  Report Type: Spontaneous
  Country: US (occurrence: US)
  Receive Date: 20140318
  Receipt Date: 20140318
  Transmission Date: 20141002
  Serious: Yes (Other)
  Sender: FDA-Public Use
  Company Number: US-BRISTOL-MYERS SQUIBB COMPANY-20434973

PATIENT
  Age: 74 Year
  Sex: Female
  Weight: 70.29 kg

DRUGS (5)
  1. COUMADIN [Suspect]
     Indication: AORTIC VALVE STENOSIS
     Dates: end: 201403
  2. WARFARIN SODIUM [Suspect]
     Indication: AORTIC VALVE STENOSIS
     Dates: start: 20140219
  3. SYNTHROID [Concomitant]
  4. ARMOUR THYROID [Concomitant]
  5. OMEPRAZOLE [Concomitant]

REACTIONS (3)
  - Pain [Unknown]
  - Gait disturbance [Unknown]
  - Dyspnoea [Unknown]
